FAERS Safety Report 5603413-5 (Version None)
Quarter: 2008Q1

REPORT INFORMATION
  Report Type: 
  Country: None (occurrence: None)
  Receive Date: 20080122
  Receipt Date: 20080110
  Transmission Date: 20080703
  Serious: Yes (Other)
  Sender: FDA-Public Use
  Company Number: 2008US000198

PATIENT
  Age: 68 Year
  Sex: Male

DRUGS (1)
  1. AMBISOME [Suspect]
     Indication: PYREXIA
     Dosage: IV NOS
     Route: 042

REACTIONS (4)
  - BLOOD CULTURE POSITIVE [None]
  - NEUTROPENIA [None]
  - PNEUMONIA KLEBSIELLA [None]
  - TRICHOSPORON INFECTION [None]
